FAERS Safety Report 13261703 (Version 1)
Quarter: 2017Q1

REPORT INFORMATION
  Report Type: Spontaneous
  Country: DE (occurrence: DE)
  Receive Date: 20170222
  Receipt Date: 20170222
  Transmission Date: 20170428
  Serious: Yes (Other)
  Sender: FDA-Public Use
  Company Number: GXKR2017DE001157

PATIENT

DRUGS (3)
  1. VENLAFAXINE [Suspect]
     Active Substance: VENLAFAXINE HYDROCHLORIDE
     Indication: DEPRESSION
     Dosage: 150 [MG/D ]
     Route: 064
     Dates: start: 20160101, end: 20161014
  2. QUETIAPINE. [Suspect]
     Active Substance: QUETIAPINE
     Indication: DEPRESSION
     Dosage: 25 [MG/D ]
     Route: 064
     Dates: start: 20160101, end: 20161014
  3. MINPROSTIN E2 [Concomitant]
     Indication: LABOUR INDUCTION
     Route: 064
     Dates: start: 20161014, end: 20161014

REACTIONS (2)
  - Small for dates baby [Recovering/Resolving]
  - Hypoglycaemia neonatal [Recovered/Resolved]

NARRATIVE: CASE EVENT DATE: 20161014
